FAERS Safety Report 8583156-9 (Version None)
Quarter: 2012Q3

REPORT INFORMATION
  Report Type: 
  Country: None (occurrence: None)
  Receive Date: 20120727
  Receipt Date: 20120718
  Transmission Date: 20120928
  Serious: Yes (Other)
  Sender: FDA-Public Use
  Company Number: 2012AP002082

PATIENT
  Age: 61 Year
  Sex: Male

DRUGS (5)
  1. ATORVASTATIN [Suspect]
     Indication: PRODUCT USED FOR UNKNOWN INDICATION
     Dosage: 40 MG;QD
  2. ASPIRIN [Concomitant]
  3. COLECALCIFEROL (COLECALCIFEROL) [Concomitant]
  4. ALENDRONATE SODIUM [Suspect]
     Indication: PRODUCT USED FOR UNKNOWN INDICATION
     Dosage: 70 MG;QW
     Dates: start: 20120310
  5. PRASUGREL HYDROCHLORIDE (PRASUGREL HYDROCHLORIDE) [Suspect]
     Indication: PRODUCT USED FOR UNKNOWN INDICATION
     Dosage: 5 MG; QD; PO
     Route: 048
     Dates: start: 20120307

REACTIONS (1)
  - CONVULSION [None]
